FAERS Safety Report 15839445 (Version 1)
Quarter: 2019Q1

REPORT INFORMATION
  Report Type: Spontaneous
  Country: US (occurrence: US)
  Receive Date: 20190117
  Receipt Date: 20190117
  Transmission Date: 20190417
  Serious: No
  Sender: FDA-Public Use
  Company Number: US-PFIZER INC-2019022700

PATIENT
  Age: 45 Year
  Sex: Female

DRUGS (1)
  1. LYRICA [Suspect]
     Active Substance: PREGABALIN
     Indication: FIBROMYALGIA
     Dosage: 75 MG, 2X/DAY [ONE PILL EACH MORNING, AND A 2ND PILL IF SHE IS NOT FEELING WELL]
     Route: 048

REACTIONS (3)
  - Product use issue [Unknown]
  - Dizziness [Unknown]
  - Hypersomnia [Unknown]
